FAERS Safety Report 7334424-X (Version None)
Quarter: 2011Q1

REPORT INFORMATION
  Report Type: 
  Country: None (occurrence: None)
  Receive Date: 20110307
  Receipt Date: 20110224
  Transmission Date: 20110831
  Serious: Yes (Other)
  Sender: FDA-Public Use
  Company Number: PHHY2011US14701

PATIENT
  Sex: Female

DRUGS (11)
  1. NORTRIPTYLINE HYDROCHLORIDE [Concomitant]
     Dosage: UNK, QHS
     Route: 048
  2. HYDRALAZINE HYDROCHLORIDE [Concomitant]
     Dosage: 25 MG, UNK
  3. AMANTADINE HCL [Concomitant]
     Dosage: 100 MG, DAILY
  4. ZOCOR [Concomitant]
     Dosage: 20 MG, UNK
  5. ASPIRIN [Concomitant]
     Dosage: 325 MG, UNK
  6. LOVAZA [Concomitant]
     Dosage: UNK, ONE EVERY MORNING AND ONE EVERY EVENING
  7. ATIVAN [Concomitant]
     Dosage: 1 DF, ONE HOUR BEFORE MRI AND ONE AS NEEDED
     Route: 048
  8. LYRICA [Concomitant]
     Dosage: 1 DF EVERY MORNING AND 2 DF QHS
     Route: 048
  9. MULTIVITAMIN [Concomitant]
     Dosage: UNK, DAILY
  10. GILENYA [Suspect]
     Indication: RELAPSING-REMITTING MULTIPLE SCLEROSIS
     Dosage: 0.5 MG, QD
     Route: 048
     Dates: start: 20101122
  11. TOPROL-XL [Concomitant]
     Dosage: 100 MG, DAILY

REACTIONS (1)
  - EYE HAEMORRHAGE [None]
